FAERS Safety Report 24845910 (Version 1)
Quarter: 2025Q1

REPORT INFORMATION
  Report Type: Spontaneous
  Country: US (occurrence: None)
  Receive Date: 20250115
  Receipt Date: 20250115
  Transmission Date: 20250409
  Serious: Yes (Other)
  Sender: FDA-CTU
  Company Number: None

PATIENT
  Age: 45 Year
  Sex: Female
  Weight: 74.25 kg

DRUGS (19)
  1. PROPAFENONE [Suspect]
     Active Substance: PROPAFENONE
     Indication: Atrial fibrillation
     Dosage: FREQUENCY : TWICE A DAY;?
     Route: 048
     Dates: start: 20230420, end: 20230731
  2. CARVEDILOL [Concomitant]
     Active Substance: CARVEDILOL
  3. TAMSULOSIN [Concomitant]
     Active Substance: TAMSULOSIN
  4. FLECAINIDE [Concomitant]
     Active Substance: FLECAINIDE
  5. Flutic/Salmeter [Concomitant]
  6. ALBUTEROL SULFATE [Concomitant]
     Active Substance: ALBUTEROL SULFATE
  7. DILTIAZEM [Concomitant]
     Active Substance: DILTIAZEM
  8. LEVALBUTEROL [Concomitant]
     Active Substance: LEVALBUTEROL
  9. CYCLOBENZAPRINE [Concomitant]
     Active Substance: CYCLOBENZAPRINE
  10. METHIMAZOLE [Concomitant]
     Active Substance: METHIMAZOLE
  11. XYOSTED [Concomitant]
     Active Substance: TESTOSTERONE ENANTHATE
  12. COLLAGEN [Concomitant]
     Active Substance: COLLAGEN
  13. B12 [Concomitant]
  14. CALCIUM [Concomitant]
     Active Substance: CALCIUM
  15. ASPIRIN [Concomitant]
     Active Substance: ASPIRIN
  16. MULTI-VITAMIN [Concomitant]
     Active Substance: .ALPHA.-TOCOPHEROL ACETATE, DL-\ASCORBIC ACID\CYANOCOBALAMIN\FLUORIDE ION\FOLIC ACID\NIACIN\PYRIDOXI
  17. VITAMIN D [Concomitant]
     Active Substance: VITAMIN D NOS
  18. GLUCOSAMINE [Concomitant]
     Active Substance: GLUCOSAMINE
  19. MAGNESIUM [Concomitant]
     Active Substance: MAGNESIUM

REACTIONS (1)
  - Contusion [None]

NARRATIVE: CASE EVENT DATE: 20230420
